FAERS Safety Report 7624928-4 (Version None)
Quarter: 2011Q3

REPORT INFORMATION
  Report Type: 
  Country: None (occurrence: None)
  Receive Date: 20110720
  Receipt Date: 20080901
  Transmission Date: 20111222
  Serious: Yes (Other)
  Sender: FDA-Public Use
  Company Number: DE-GENENTECH-321691

PATIENT
  Age: 72 Year
  Sex: Female

DRUGS (1)
  1. LUCENTIS [Suspect]
     Indication: AGE-RELATED MACULAR DEGENERATION
     Dosage: UNK UNK, UNKNOWN
     Route: 031

REACTIONS (9)
  - SINUSITIS [None]
  - INSOMNIA [None]
  - HEADACHE [None]
  - EYE HAEMORRHAGE [None]
  - ANXIETY [None]
  - NASOPHARYNGITIS [None]
  - EYE PAIN [None]
  - VISUAL ACUITY REDUCED [None]
  - OSTEOPOROSIS [None]
